FAERS Safety Report 9003161 (Version 1)
Quarter: 2013Q1

REPORT INFORMATION
  Report Type: Spontaneous
  Country: GB (occurrence: GB)
  Receive Date: 20130108
  Receipt Date: 20130108
  Transmission Date: 20140127
  Serious: Yes (Other)
  Sender: FDA-Public Use
  Company Number: GB-PFIZER INC-2013004228

PATIENT
  Age: 76 Year
  Sex: Male

DRUGS (2)
  1. ATENOLOL [Suspect]
     Indication: HYPERTENSION
     Dosage: 25 MG, UNK
     Route: 048
     Dates: start: 20121122
  2. SIMVASTATIN [Concomitant]
     Dosage: 20 MG, 1X/DAY
     Route: 048

REACTIONS (6)
  - Hypertension [Not Recovered/Not Resolved]
  - Decreased activity [Not Recovered/Not Resolved]
  - Gait disturbance [Not Recovered/Not Resolved]
  - Blood pressure decreased [Not Recovered/Not Resolved]
  - Dyspnoea [Not Recovered/Not Resolved]
  - Heart rate decreased [Not Recovered/Not Resolved]
